FAERS Safety Report 5090309-3 (Version None)
Quarter: 2006Q3

REPORT INFORMATION
  Report Type: 
  Country: None (occurrence: None)
  Receive Date: 20060828
  Receipt Date: 20060713
  Transmission Date: 20061208
  Serious: Yes (Hospitalization)
  Sender: FDA-Public Use
  Company Number: US-GLAXOSMITHKLINE-A0612197A

PATIENT
  Sex: Male

DRUGS (4)
  1. WELLBUTRIN XL [Suspect]
     Indication: DEPRESSION
     Dosage: 300MG PER DAY
     Route: 048
     Dates: end: 20060701
  2. LEXAPRO [Concomitant]
  3. LANTUS [Concomitant]
  4. SYNTHROID [Concomitant]

REACTIONS (3)
  - HEPATIC ENZYME INCREASED [None]
  - RASH [None]
  - TINNITUS [None]
